FAERS Safety Report 25596646 (Version 2)
Quarter: 2025Q4

REPORT INFORMATION
  Report Type: Spontaneous
  Country: JP (occurrence: JP)
  Receive Date: 20250723
  Receipt Date: 20251105
  Transmission Date: 20260118
  Serious: Yes (Hospitalization)
  Sender: GALDERMA
  Company Number: JP-GALDERMA-JP2023013660

PATIENT

DRUGS (9)
  1. NEMOLIZUMAB [Suspect]
     Active Substance: NEMOLIZUMAB
     Indication: Dermatitis atopic
     Dosage: 60 MILLIGRAM/4 WEEKS
     Route: 058
     Dates: start: 20230428, end: 20230428
  2. NEMOLIZUMAB [Suspect]
     Active Substance: NEMOLIZUMAB
     Dosage: 60 MILLIGRAM/4 WEEKS
     Route: 058
     Dates: start: 2023, end: 2023
  3. NEMOLIZUMAB [Suspect]
     Active Substance: NEMOLIZUMAB
     Dosage: 60 MILLIGRAM/4 WEEKS
     Route: 058
     Dates: start: 20230728, end: 20230728
  4. PREDONINE [Concomitant]
     Active Substance: PREDNISOLONE
     Indication: Dermatitis atopic
     Dosage: 2 MILLIGRAM
     Route: 048
     Dates: start: 20230619, end: 20230805
  5. PREDONINE [Concomitant]
     Active Substance: PREDNISOLONE
     Dosage: UNK,DOSE INCREASED
     Route: 048
  6. Heparinoid [Concomitant]
     Indication: Dermatitis atopic
     Dosage: UNK
     Route: 061
     Dates: start: 20230619, end: 20230805
  7. OLOPATADINE HYDROCHLORIDE [Concomitant]
     Active Substance: OLOPATADINE HYDROCHLORIDE
     Indication: Dermatitis atopic
     Dosage: 10 MILLIGRAM
     Route: 048
     Dates: start: 20230619, end: 20230805
  8. Talion [Concomitant]
     Indication: Dermatitis atopic
     Dosage: 20 MILLIGRAM
     Route: 048
     Dates: start: 20230619, end: 20230805
  9. RINDERON VG [Concomitant]
     Active Substance: BETAMETHASONE VALERATE\GENTAMICIN SULFATE
     Indication: Dermatitis atopic
     Dosage: UNK
     Route: 061
     Dates: start: 20230619, end: 20230805

REACTIONS (1)
  - Cellulitis [Recovered/Resolved]

NARRATIVE: CASE EVENT DATE: 20230617
